FAERS Safety Report 5116741-7 (Version None)
Quarter: 2006Q3

REPORT INFORMATION
  Report Type: 
  Country: None (occurrence: None)
  Receive Date: 20060928
  Receipt Date: 20060922
  Transmission Date: 20061208
  Serious: Yes (Disabling)
  Sender: FDA-Public Use
  Company Number: NO-MERCK-0609NOR00016

PATIENT
  Age: 28 Year
  Sex: Female

DRUGS (3)
  1. ZOCOR [Suspect]
     Indication: TYPE IIA HYPERLIPIDAEMIA
     Route: 048
     Dates: start: 20020201, end: 20060601
  2. ATORVASTATIN CALCIUM [Suspect]
     Indication: TYPE IIA HYPERLIPIDAEMIA
     Route: 048
     Dates: start: 19980101, end: 20060201
  3. ZOPICLONE [Concomitant]
     Indication: INSOMNIA
     Route: 048

REACTIONS (1)
  - CHRONIC FATIGUE SYNDROME [None]
